FAERS Safety Report 6191289-X (Version None)
Quarter: 2009Q2

REPORT INFORMATION
  Report Type: 
  Country: None (occurrence: None)
  Receive Date: 20090515
  Receipt Date: 20071002
  Transmission Date: 20091009
  Serious: Yes (Hospitalization, Other)
  Sender: FDA-Public Use
  Company Number: US-ASTRAZENECA-2007UW09443

PATIENT
  Age: 19553 Day
  Sex: Male
  Weight: 87.8 kg

DRUGS (25)
  1. SEROQUEL [Suspect]
     Indication: SCHIZOPHRENIA
     Dosage: 200 MG, 600 MG
     Route: 048
     Dates: start: 20010101
  2. SEROQUEL [Suspect]
     Indication: DEPRESSION
     Dosage: 200 MG, 600 MG
     Route: 048
     Dates: start: 20010101
  3. SEROQUEL [Suspect]
     Indication: PARANOIA
     Dosage: 200 MG, 600 MG
     Route: 048
     Dates: start: 20010101
  4. SEROQUEL [Suspect]
     Dosage: 25-400 MG
     Route: 048
     Dates: start: 20020110
  5. SEROQUEL [Suspect]
     Dosage: 25-400 MG
     Route: 048
     Dates: start: 20020110
  6. SEROQUEL [Suspect]
     Dosage: 25-400 MG
     Route: 048
     Dates: start: 20020110
  7. HALDOL [Concomitant]
     Dosage: 100 MG-125 MG
     Route: 065
     Dates: start: 19990101, end: 20000101
  8. PROZAC [Concomitant]
     Dosage: 20 MG-40 MG
     Route: 065
     Dates: start: 19990101, end: 20010101
  9. COGENTIN [Concomitant]
     Route: 065
     Dates: start: 20000101, end: 20010101
  10. TRAZODONE HCL [Concomitant]
     Dosage: 100 MG-150 MG
     Route: 065
     Dates: start: 19950101, end: 20010101
  11. ZYPREXA [Concomitant]
     Route: 065
     Dates: start: 19990101, end: 20010101
  12. ASPIRIN [Concomitant]
     Dosage: 325 MG OD, 1 PO Q DAY
     Route: 065
  13. NITRO-BID [Concomitant]
     Dosage: DOSE 0.5 INCHES
     Route: 065
  14. LOVENOX [Concomitant]
     Dosage: 90 MG, 0.9 ML
     Route: 065
  15. NORVASC [Concomitant]
     Dosage: 2.5 - 5 MG STRENTHS
     Route: 065
  16. REMERON [Concomitant]
     Route: 065
  17. ADVAIR HFA [Concomitant]
     Dosage: 1 PUFF
     Route: 065
  18. METFORMIN HCL [Concomitant]
     Route: 065
  19. LIPITOR [Concomitant]
     Route: 065
  20. ZOLPIDEM [Concomitant]
     Route: 065
  21. GUAIFEN [Concomitant]
     Dosage: 100-10 MG/5 ML
     Route: 065
  22. TRAMADOL [Concomitant]
     Route: 065
  23. GABAPENTIN [Concomitant]
     Route: 065
  24. DIAZEPAM [Concomitant]
     Route: 065
  25. SIMVASTATIN [Concomitant]
     Route: 065

REACTIONS (43)
  - AFFECTIVE DISORDER [None]
  - ALCOHOLISM [None]
  - ANXIETY [None]
  - ARTERIAL DISORDER [None]
  - ARTHRALGIA [None]
  - BIPOLAR DISORDER [None]
  - BLOOD CHOLESTEROL INCREASED [None]
  - BRONCHITIS [None]
  - BRONCHOSPASM [None]
  - CHEST PAIN [None]
  - CHRONIC OBSTRUCTIVE PULMONARY DISEASE [None]
  - COLONIC POLYP [None]
  - CONSTIPATION [None]
  - COUGH [None]
  - DIABETES MELLITUS [None]
  - DIARRHOEA [None]
  - DRUG DEPENDENCE [None]
  - DYSPNOEA [None]
  - EMPHYSEMA [None]
  - HAEMATOCHEZIA [None]
  - HAEMORRHOIDS [None]
  - HEPATITIS C [None]
  - HYPERTENSION [None]
  - HYPOAESTHESIA [None]
  - INJURY [None]
  - JOINT SPRAIN [None]
  - LOSS OF CONSCIOUSNESS [None]
  - OEDEMA PERIPHERAL [None]
  - OROMANDIBULAR DYSTONIA [None]
  - PAIN [None]
  - PAIN IN EXTREMITY [None]
  - PARAESTHESIA [None]
  - PRESBYOPIA [None]
  - PRESYNCOPE [None]
  - RECTAL POLYP [None]
  - RETINOPATHY [None]
  - SCHIZOAFFECTIVE DISORDER [None]
  - SUICIDAL IDEATION [None]
  - SYNCOPE [None]
  - TARDIVE DYSKINESIA [None]
  - TONGUE DISORDER [None]
  - VIRAL UPPER RESPIRATORY TRACT INFECTION [None]
  - WEIGHT INCREASED [None]
